FAERS Safety Report 10465405 (Version 1)
Quarter: 2014Q3

REPORT INFORMATION
  Report Type: Spontaneous
  Country: FR (occurrence: FR)
  Receive Date: 20140919
  Receipt Date: 20140919
  Transmission Date: 20150326
  Serious: Yes (Hospitalization, Other)
  Sender: FDA-Public Use
  Company Number: FR-PFIZER INC-2014257891

PATIENT
  Age: 82 Year
  Sex: Female

DRUGS (2)
  1. EFFEXOR LP [Suspect]
     Active Substance: VENLAFAXINE HYDROCHLORIDE
     Dosage: 75 MG, 1X/DAY
     Route: 048
     Dates: end: 20140903
  2. EFFEXOR LP [Suspect]
     Active Substance: VENLAFAXINE HYDROCHLORIDE
     Dosage: 37.5 MG, 1X/DAY
     Route: 048
     Dates: start: 20140812, end: 20140903

REACTIONS (5)
  - Hypertension [Unknown]
  - Serotonin syndrome [Unknown]
  - Fall [Unknown]
  - Hot flush [Unknown]
  - Malaise [Unknown]

NARRATIVE: CASE EVENT DATE: 20140903
